FAERS Safety Report 7250692-7 (Version None)
Quarter: 2011Q1

REPORT INFORMATION
  Report Type: 
  Country: None (occurrence: None)
  Receive Date: 20110128
  Receipt Date: 20110120
  Transmission Date: 20110831
  Serious: Yes (Other)
  Sender: FDA-Public Use
  Company Number: US-JNJFOC-20091105752

PATIENT
  Sex: Male
  Weight: 73.94 kg

DRUGS (3)
  1. RISPERDAL [Suspect]
     Dosage: 1/2 TABLET DAILY
     Route: 048
  2. RISPERDAL [Suspect]
     Indication: SLEEP DISORDER
     Route: 048
  3. RISPERDAL CONSTA [Suspect]
     Indication: SCHIZOPHRENIA
     Route: 030

REACTIONS (11)
  - INSOMNIA [None]
  - RED BLOOD CELL COUNT DECREASED [None]
  - INFECTION [None]
  - SOMNOLENCE [None]
  - LOW DENSITY LIPOPROTEIN DECREASED [None]
  - WHITE BLOOD CELL COUNT DECREASED [None]
  - RASH [None]
  - FURUNCLE [None]
  - WRONG TECHNIQUE IN DRUG USAGE PROCESS [None]
  - NEUTROPHIL COUNT DECREASED [None]
  - OFF LABEL USE [None]
